FAERS Safety Report 11408540 (Version 1)
Quarter: 2015Q3

REPORT INFORMATION
  Report Type: Spontaneous
  Country: US (occurrence: US)
  Receive Date: 20150822
  Receipt Date: 20150822
  Transmission Date: 20151125
  Serious: Yes (Other)
  Sender: FDA-Public Use
  Company Number: US-CIPLA LTD.-2015US06673

PATIENT

DRUGS (2)
  1. CHLORPROMAZINE. [Suspect]
     Active Substance: CHLORPROMAZINE
     Indication: OVERDOSE
     Dosage: 2000 MG, UNK
     Route: 065
  2. RISPERIDONE. [Suspect]
     Active Substance: RISPERIDONE
     Indication: OVERDOSE
     Dosage: 40 MG, UNK
     Route: 065

REACTIONS (2)
  - Overdose [Unknown]
  - Electrocardiogram abnormal [Unknown]
